FAERS Safety Report 11424839 (Version 2)
Quarter: 2015Q3

REPORT INFORMATION
  Report Type: Spontaneous
  Country: US (occurrence: US)
  Receive Date: 20150821
  Receipt Date: 20150903
  Transmission Date: 20151125
  Serious: No
  Sender: FDA-Public Use
  Company Number: US-ELI_LILLY_AND_COMPANY-US201212003696

PATIENT
  Age: 67 Year
  Sex: Female

DRUGS (3)
  1. HUMALOG MIX75/25 [Suspect]
     Active Substance: INSULIN LISPRO
  2. LANTUS [Concomitant]
     Active Substance: INSULIN GLARGINE
  3. HUMULIN 70/30 [Suspect]
     Active Substance: INSULIN HUMAN
     Indication: DIABETES MELLITUS
     Dosage: UNK, PRN
     Dates: start: 1995

REACTIONS (1)
  - Cataract [Unknown]

NARRATIVE: CASE EVENT DATE: 201206
